FAERS Safety Report 8471924-3 (Version None)
Quarter: 2012Q2

REPORT INFORMATION
  Report Type: 
  Country: None (occurrence: None)
  Receive Date: 20120627
  Receipt Date: 20120614
  Transmission Date: 20120825
  Serious: No
  Sender: FDA-Public Use
  Company Number: US-ASTRAZENECA-2012SE39980

PATIENT
  Age: 80 Year
  Sex: Male
  Weight: 55.8 kg

DRUGS (1)
  1. CRESTOR [Suspect]
     Route: 048

REACTIONS (4)
  - DIARRHOEA [None]
  - ABDOMINAL DISTENSION [None]
  - NAUSEA [None]
  - FLATULENCE [None]
